FAERS Safety Report 18672729 (Version 3)
Quarter: 2021Q1

REPORT INFORMATION
  Report Type: Other
  Country: US (occurrence: US)
  Receive Date: 20201228
  Receipt Date: 20210128
  Transmission Date: 20210419
  Serious: Yes (Other)
  Sender: FDA-Public Use
  Company Number: US-ROCHE-2737543

PATIENT
  Age: 65 Year
  Sex: Female
  Weight: 49.49 kg

DRUGS (10)
  1. KLOR?CON [Concomitant]
     Active Substance: POTASSIUM CHLORIDE
     Dosage: TAKE 2 TABLET BY MOUTH
     Route: 048
     Dates: start: 20200929
  2. DESYREL [Concomitant]
     Active Substance: TRAZODONE HYDROCHLORIDE
     Dosage: NIGHTLY
     Route: 048
     Dates: start: 20201029
  3. TECENTRIQ [Suspect]
     Active Substance: ATEZOLIZUMAB
     Indication: MALIGNANT NEOPLASM OF UNKNOWN PRIMARY SITE
     Dosage: STRENGTH: 60 MG/ML?DATE OF TREATMENT: 25/SEP/2020, 20/OCT/2020, 09/NOV/2020, 18/JAN/2021
     Route: 042
  4. NORCO [Concomitant]
     Active Substance: ACETAMINOPHEN\HYDROCODONE BITARTRATE
     Dosage: 7.5?325, AS NEEDED
     Route: 048
     Dates: start: 20201210
  5. ZOFRAN [Concomitant]
     Active Substance: ONDANSETRON HYDROCHLORIDE
     Indication: NAUSEA
     Dosage: AS NEEDED
     Route: 048
  6. DURAGESIC [Concomitant]
     Active Substance: FENTANYL
     Dosage: 25 MG/ HR
     Route: 061
     Dates: start: 20201210
  7. PROTONIX [Concomitant]
     Active Substance: PANTOPRAZOLE SODIUM
     Dates: start: 20200615, end: 20200615
  8. CARBOPLATIN. [Concomitant]
     Active Substance: CARBOPLATIN
  9. ETOPOSIDE. [Concomitant]
     Active Substance: ETOPOSIDE
  10. DECADRON [Concomitant]
     Active Substance: DEXAMETHASONE
     Dosage: WITH BREAKFAST
     Route: 048
     Dates: start: 20201013

REACTIONS (10)
  - Syncope [Unknown]
  - Oesophageal rupture [Unknown]
  - Fatigue [Unknown]
  - Failure to thrive [Unknown]
  - Leukopenia [Unknown]
  - Intentional product use issue [Unknown]
  - Off label use [Unknown]
  - Cachexia [Unknown]
  - Hypokalaemia [Unknown]
  - Cancer pain [Unknown]

NARRATIVE: CASE EVENT DATE: 20200810
